FAERS Safety Report 22353504 (Version 4)
Quarter: 2023Q4

REPORT INFORMATION
  Report Type: Report from Study
  Country: US (occurrence: US)
  Receive Date: 20230523
  Receipt Date: 20231201
  Transmission Date: 20240110
  Serious: Yes (Hospitalization, Other)
  Sender: FDA-Public Use
  Company Number: US-INSMED, INC.-2023-01307-US

PATIENT
  Sex: Female

DRUGS (6)
  1. ARIKAYCE [Suspect]
     Active Substance: AMIKACIN
     Indication: Mycobacterial infection
     Dosage: 590 MILLIGRAM, QD
     Route: 055
     Dates: start: 202108, end: 202305
  2. AZITHROMYCIN [Concomitant]
     Active Substance: AZITHROMYCIN
     Indication: Product used for unknown indication
     Dosage: UNK
  3. CLARITHROMYCIN [Concomitant]
     Active Substance: CLARITHROMYCIN
     Indication: Product used for unknown indication
  4. RIFAMPIN [Concomitant]
     Active Substance: RIFAMPIN
     Indication: Product used for unknown indication
     Dosage: UNK
     Dates: end: 202305
  5. RIFABUTIN [Concomitant]
     Active Substance: RIFABUTIN
     Indication: Product used for unknown indication
     Dosage: UNK
     Route: 048
  6. ISONIAZID [Concomitant]
     Active Substance: ISONIAZID
     Indication: Product used for unknown indication
     Dosage: UNK

REACTIONS (14)
  - Emergency care [Unknown]
  - Hospitalisation [Unknown]
  - Paranasal sinus hypersecretion [Unknown]
  - Oxygen saturation decreased [Unknown]
  - Lung disorder [Unknown]
  - Depression [Unknown]
  - Neuropathy peripheral [Unknown]
  - Peripheral swelling [Unknown]
  - Sputum retention [Unknown]
  - Muscle tightness [Unknown]
  - Abdominal pain upper [Unknown]
  - Chest discomfort [Unknown]
  - Feeling abnormal [Unknown]
  - Therapy interrupted [Unknown]

NARRATIVE: CASE EVENT DATE: 20230101
